FAERS Safety Report 7200334-1 (Version None)
Quarter: 2010Q4

REPORT INFORMATION
  Report Type: 
  Country: None (occurrence: None)
  Receive Date: 20101228
  Receipt Date: 20101217
  Transmission Date: 20110411
  Serious: Yes (Hospitalization)
  Sender: FDA-Public Use
  Company Number: CA-JNJFOC-20100700867

PATIENT
  Sex: Male
  Weight: 104 kg

DRUGS (9)
  1. USTEKINUMAB [Suspect]
     Indication: PSORIASIS
     Route: 058
  2. USTEKINUMAB [Suspect]
     Route: 058
  3. USTEKINUMAB [Suspect]
     Route: 058
  4. PLACEBO [Suspect]
     Indication: PSORIASIS
     Route: 058
  5. PLACEBO [Suspect]
     Route: 058
  6. PLACEBO [Suspect]
     Route: 058
  7. LANTUS [Concomitant]
     Indication: DIABETES MELLITUS
     Route: 058
  8. GLYBURIDE [Concomitant]
     Route: 048
  9. SYNTHROID [Concomitant]
     Indication: HYPERTHYROIDISM
     Route: 042

REACTIONS (1)
  - LYMPHADENOPATHY [None]
